FAERS Safety Report 9051262 (Version 3)
Quarter: 2013Q2

REPORT INFORMATION
  Report Type: Report from Study
  Country: US (occurrence: US)
  Receive Date: 20130206
  Receipt Date: 20130419
  Transmission Date: 20140414
  Serious: Yes (Hospitalization, Other)
  Sender: FDA-Public Use
  Company Number: US-ASTELLAS-2013US001340

PATIENT
  Age: 56 Year
  Sex: Female
  Weight: 91 kg

DRUGS (6)
  1. ERLOTINIB TABLET [Suspect]
     Indication: NON-SMALL CELL LUNG CANCER
     Dosage: 150 MG, UID/QD
     Route: 048
     Dates: start: 20130108, end: 20130123
  2. ERLOTINIB TABLET [Suspect]
     Dosage: 150 MG, UID/QD
     Route: 048
     Dates: end: 20130202
  3. COUMADIN                           /00014802/ [Concomitant]
     Indication: DEEP VEIN THROMBOSIS
     Dosage: 7.5 MG, FOR 4 DAYS
     Route: 048
     Dates: start: 20111223
  4. COUMADIN                           /00014802/ [Concomitant]
     Dosage: 5.0 MG, DAILY FOR 3 DAYS
     Route: 048
     Dates: start: 20111223
  5. LISINOPRIL [Concomitant]
     Indication: PRODUCT USED FOR UNKNOWN INDICATION
     Dosage: UNK
     Route: 048
  6. LEVOTHYROXINE [Concomitant]
     Indication: HYPOTHYROIDISM
     Dosage: 125 UG, UNKNOWN/D
     Route: 048

REACTIONS (16)
  - Facial pain [Recovered/Resolved]
  - Sunburn [Recovered/Resolved]
  - Eye disorder [Recovering/Resolving]
  - Headache [Recovered/Resolved]
  - Mucosal inflammation [Unknown]
  - Rash [Recovered/Resolved]
  - Rash [Recovered/Resolved]
  - Diarrhoea [Not Recovered/Not Resolved]
  - Faeces discoloured [Recovered/Resolved]
  - Gastrointestinal haemorrhage [Unknown]
  - Oral mucosal blistering [Recovering/Resolving]
  - Erythema [Recovered/Resolved]
  - Blister [Recovering/Resolving]
  - Blister [Recovering/Resolving]
  - Gingival bleeding [Unknown]
  - Dry mouth [Unknown]
